FAERS Safety Report 20827934 (Version 1)
Quarter: 2022Q2

REPORT INFORMATION
  Report Type: Spontaneous
  Country: US (occurrence: US)
  Receive Date: 20220513
  Receipt Date: 20220513
  Transmission Date: 20220721
  Serious: No
  Sender: FDA-Public Use
  Company Number: US-PFIZER INC-202101317591

PATIENT
  Age: 55 Year
  Sex: Female

DRUGS (1)
  1. VYNDAMAX [Interacting]
     Active Substance: TAFAMIDIS
     Dosage: UNK
     Dates: start: 201807, end: 202007

REACTIONS (1)
  - Drug interaction [Unknown]
